FAERS Safety Report 7917870-2 (Version None)
Quarter: 2011Q4

REPORT INFORMATION
  Report Type: 
  Country: None (occurrence: None)
  Receive Date: 20111116
  Receipt Date: 20111107
  Transmission Date: 20120403
  Serious: Yes (Other)
  Sender: FDA-Public Use
  Company Number: PHEH2011US00446

PATIENT
  Sex: Male

DRUGS (13)
  1. ZOMETA [Suspect]
     Dosage: 4 MG, UNK
  2. VIAGRA [Concomitant]
     Dosage: UNK UKN, UNK
  3. DEXAMETHASONE [Concomitant]
  4. PREDNISONE [Concomitant]
  5. FENTANYL [Concomitant]
     Dosage: 1 DF, EVERY THREE DAYS
     Route: 048
  6. LUPRON [Concomitant]
  7. SOLU-MEDROL [Concomitant]
  8. PALONOSETRON [Concomitant]
  9. CASODEX [Concomitant]
     Dosage: UNK UKN, QD
  10. ZOSTRIX [Concomitant]
  11. RANITIDINE [Concomitant]
  12. ACETAMINOPHEN AND HYDROCODONE BITARTRATE [Concomitant]
     Dosage: 10 MG HYDROCODONE AND 325 MG ACETAMINOPHEN
     Route: 048
  13. LYRICA [Concomitant]
     Dosage: 1 DF, TID

REACTIONS (35)
  - PROSTATE CANCER METASTATIC [None]
  - HAEMORRHAGE [None]
  - SKIN LESION [None]
  - RHEUMATOID ARTHRITIS [None]
  - ERECTILE DYSFUNCTION [None]
  - OEDEMA [None]
  - CHEST PAIN [None]
  - OSTEOSCLEROSIS [None]
  - ATELECTASIS [None]
  - INTERVERTEBRAL DISC DEGENERATION [None]
  - PULMONARY EMBOLISM [None]
  - OSTEONECROSIS OF JAW [None]
  - INJURY [None]
  - DECREASED INTEREST [None]
  - NEUTROPENIA [None]
  - BACK PAIN [None]
  - VARICELLA [None]
  - HYPERTENSION [None]
  - LYMPHADENOPATHY [None]
  - AORTIC ARTERIOSCLEROSIS [None]
  - NEPHROLITHIASIS [None]
  - ARTHRALGIA [None]
  - DIVERTICULUM INTESTINAL [None]
  - NEUROPATHY PERIPHERAL [None]
  - PAIN [None]
  - ANXIETY [None]
  - CONSTIPATION [None]
  - COMPRESSION FRACTURE [None]
  - PATHOLOGICAL FRACTURE [None]
  - HEPATIC STEATOSIS [None]
  - DEPRESSION [None]
  - DISABILITY [None]
  - BONE PAIN [None]
  - METASTASES TO SPINE [None]
  - ABDOMINAL PAIN UPPER [None]
